FAERS Safety Report 4945738-2 (Version None)
Quarter: 2006Q1

REPORT INFORMATION
  Report Type: 
  Country: None (occurrence: None)
  Receive Date: 20060117
  Receipt Date: 20050314
  Transmission Date: 20060701
  Serious: Yes (Other)
  Sender: FDA-Public Use
  Company Number: A03200500691

PATIENT
  Age: 65 Year
  Sex: Female
  Weight: 72.1219 kg

DRUGS (29)
  1. PLAVIX [Suspect]
     Indication: STENT PLACEMENT
     Dosage: 75 MG QD- ORAL
     Route: 048
     Dates: start: 20040418, end: 20040801
  2. PLAVIX [Suspect]
     Indication: THROMBOSIS PROPHYLAXIS
     Dosage: 75 MG QD- ORAL
     Route: 048
     Dates: start: 20040418, end: 20040801
  3. PLAVIX [Suspect]
     Indication: VASCULAR BYPASS GRAFT
     Dosage: 75 MG QD- ORAL
     Route: 048
     Dates: start: 20040418, end: 20040801
  4. GABAPENTIN [Concomitant]
  5. ACETYLSALICTYLIC ACID [Concomitant]
  6. ATENOLOL [Concomitant]
  7. ISOSORBIDE MONITRATE [Concomitant]
  8. PANTOPRAZOLE SODIUM [Concomitant]
  9. SIMASTATIN [Concomitant]
  10. OLMESARTAN MEDOXOMIL [Concomitant]
  11. ACETAMINOPHEN AND HYDROCODONE BITARTRATE [Concomitant]
  12. EZETIMIBE [Concomitant]
  13. IBUPROFEN [Concomitant]
  14. CIPROFLOXACIN HCL [Concomitant]
  15. MIRTAZAPINE [Concomitant]
  16. HYDROCORTISONE ACETATE [Concomitant]
  17. ROFECOXIB [Concomitant]
  18. BUTALBITAL, ACETAMINOPHEN AND CAFFEINE [Concomitant]
  19. TRAMADOL HYDROCHLORIDE/ACETAMINOPHEN [Concomitant]
  20. ESOMEPRAZOLE [Concomitant]
  21. POTASSIUM CHLORIDE [Concomitant]
  22. HYDROCHLOROTHIAZIDE [Concomitant]
  23. AMITRIPTYLINE HCL [Concomitant]
  24. PROPOZYPHENE HCL +ACETAMINOPEN [Concomitant]
  25. RAMIPRIL [Concomitant]
  26. VALDECOXIB [Concomitant]
  27. ALPRAZOLAM [Concomitant]
  28. DICYCLOMINE HYDROCHLORIDE [Concomitant]
  29. DULOXETINE [Concomitant]

REACTIONS (4)
  - DRUG ERUPTION [None]
  - HYPERTENSION [None]
  - MALAISE [None]
  - VOMITING [None]
